FAERS Safety Report 23007672 (Version 3)
Quarter: 2023Q4

REPORT INFORMATION
  Report Type: Spontaneous
  Country: JP (occurrence: JP)
  Receive Date: 20230929
  Receipt Date: 20231025
  Transmission Date: 20240110
  Serious: Yes (Other)
  Sender: FDA-Public Use
  Company Number: JP-BEH-2023163604

PATIENT
  Age: 29 Year
  Sex: Female

DRUGS (13)
  1. ALBUMIN HUMAN [Suspect]
     Active Substance: ALBUMIN HUMAN
     Indication: Dysuria
     Dosage: 1V [1 VIAL], QD
     Route: 042
     Dates: start: 20201126, end: 20201128
  2. ALBUMIN HUMAN [Suspect]
     Active Substance: ALBUMIN HUMAN
     Indication: Ovarian hyperstimulation syndrome
  3. ALBUMIN HUMAN [Suspect]
     Active Substance: ALBUMIN HUMAN
     Indication: Hypoalbuminaemia
  4. LEVETIRACETAM [Suspect]
     Active Substance: LEVETIRACETAM
     Route: 048
  5. LACOSAMIDE [Suspect]
     Active Substance: LACOSAMIDE
     Route: 048
  6. VALPROATE SODIUM [Suspect]
     Active Substance: VALPROATE SODIUM
  7. CLOMIPHENE [Suspect]
     Active Substance: CLOMIPHENE
  8. MENOTROPINS [Suspect]
     Active Substance: MENOTROPINS
     Dosage: 750 INTERNATIONAL UNIT
     Route: 065
  9. DOPAMINE HYDROCHLORIDE [Suspect]
     Active Substance: DOPAMINE HYDROCHLORIDE
  10. MANNITOL [Suspect]
     Active Substance: MANNITOL
  11. HEPARIN [Suspect]
     Active Substance: HEPARIN SODIUM
     Dosage: 10000 INTERNATIONAL UNIT, QD
  12. FUROSEMIDE [Suspect]
     Active Substance: FUROSEMIDE
     Dosage: 40 MILLIGRAM, QD
  13. AZOSEMIDE [Suspect]
     Active Substance: AZOSEMIDE

REACTIONS (4)
  - Abortion induced [Unknown]
  - Maternal exposure during pregnancy [Unknown]
  - No adverse event [Unknown]
  - Off label use [Unknown]
